FAERS Safety Report 5206896-8 (Version None)
Quarter: 2006Q4

REPORT INFORMATION
  Report Type: 
  Country: None (occurrence: None)
  Receive Date: 20061030
  Receipt Date: 20060720
  Transmission Date: 20070319
  Serious: No
  Sender: FDA-Public Use
  Company Number: 255238

PATIENT
  Age: 61 Year
  Sex: Male
  Weight: 84.4 kg

DRUGS (4)
  1. LEVEMIR [Suspect]
     Indication: INSULIN-REQUIRING TYPE II DIABETES MELLITUS
     Dosage: 4 IU, QD AT H.S., SUBCUTANEOUS; 40 IU, QD, SUBCUTANEOUS
     Route: 058
     Dates: start: 20060714, end: 20060720
  2. LEVEMIR [Suspect]
     Indication: INSULIN-REQUIRING TYPE II DIABETES MELLITUS
     Dosage: 4 IU, QD AT H.S., SUBCUTANEOUS; 40 IU, QD, SUBCUTANEOUS
     Route: 058
     Dates: start: 20060720
  3. GLYBURIDE [Concomitant]
  4. METFORMIN HCL [Concomitant]

REACTIONS (3)
  - BLOOD GLUCOSE INCREASED [None]
  - UNDERDOSE [None]
  - WRONG TECHNIQUE IN DRUG USAGE PROCESS [None]
